FAERS Safety Report 5054916-6 (Version None)
Quarter: 2006Q3

REPORT INFORMATION
  Report Type: 
  Country: None (occurrence: None)
  Receive Date: 20060719
  Receipt Date: 20060315
  Transmission Date: 20061208
  Serious: No
  Sender: FDA-Public Use
  Company Number: US-AMGEN-KDL172773

PATIENT
  Sex: Male
  Weight: 83.5 kg

DRUGS (1)
  1. PROCRIT [Suspect]
     Indication: ANAEMIA
     Route: 058
     Dates: start: 20060302

REACTIONS (2)
  - CONDITION AGGRAVATED [None]
  - HEADACHE [None]
